FAERS Safety Report 19819615 (Version 1)
Quarter: 2021Q3

REPORT INFORMATION
  Report Type: Spontaneous
  Country: PL (occurrence: PL)
  Receive Date: 20210913
  Receipt Date: 20210913
  Transmission Date: 20211014
  Serious: Yes (Hospitalization, Other)
  Sender: FDA-Public Use
  Company Number: PL-AMGEN-POLSP2021138901

PATIENT
  Age: 26 Year
  Sex: Male

DRUGS (5)
  1. AZATHIOPRINE. [Concomitant]
     Active Substance: AZATHIOPRINE
     Dosage: 100 MILLIGRAM, QD
  2. BUDESONIDE. [Concomitant]
     Active Substance: BUDESONIDE
     Dosage: 9 MILLIGRAM, QD
  3. ADALIMUMAB [Suspect]
     Active Substance: ADALIMUMAB
     Indication: CROHN^S DISEASE
     Dosage: 160 MILLIGRAM
     Route: 058
  4. MESALAZINE [Concomitant]
     Active Substance: MESALAMINE
     Dosage: 3 GRAM, QD
  5. AZATHIOPRINE. [Concomitant]
     Active Substance: AZATHIOPRINE
     Dosage: 150 MILLIGRAM, QD

REACTIONS (19)
  - Haemophagocytic lymphohistiocytosis [Unknown]
  - Macrophages increased [Unknown]
  - Blood alkaline phosphatase increased [Recovering/Resolving]
  - Pyrexia [Recovered/Resolved]
  - Blood iron decreased [Recovering/Resolving]
  - Oropharyngeal pain [Recovered/Resolved]
  - Anaemia [Unknown]
  - Thrombocytopenia [Unknown]
  - Hepatic enzyme increased [Recovering/Resolving]
  - Blood triglycerides increased [Recovering/Resolving]
  - Asthenia [Unknown]
  - Leukopenia [Unknown]
  - C-reactive protein increased [Recovering/Resolving]
  - Anaemia macrocytic [Unknown]
  - Blood fibrinogen decreased [Recovering/Resolving]
  - Natural killer cell activity decreased [Unknown]
  - Rhinorrhoea [Recovered/Resolved]
  - Pancytopenia [Unknown]
  - Gamma-glutamyltransferase increased [Recovering/Resolving]
